FAERS Safety Report 8262215 (Version 5)
Quarter: 2013Q2

REPORT INFORMATION
  Report Type: Spontaneous
  Country: US (occurrence: US)
  Receive Date: 20111123
  Receipt Date: 20130523
  Transmission Date: 20140414
  Serious: Yes (Hospitalization, Other)
  Sender: FDA-Public Use
  Company Number: US-ASTRAZENECA-2011SE69059

PATIENT
  Age: 38 Year
  Sex: Female
  Weight: 72.6 kg

DRUGS (4)
  1. SEROQUEL [Suspect]
     Indication: BIPOLAR DISORDER
     Route: 048
  2. SEROQUEL [Suspect]
     Indication: BIPOLAR DISORDER
     Route: 048
  3. SEROQUEL [Suspect]
     Indication: BIPOLAR DISORDER
     Route: 048
  4. SEROQUEL [Suspect]
     Indication: BIPOLAR DISORDER
     Route: 048

REACTIONS (14)
  - Coma [Unknown]
  - Asthenia [Unknown]
  - Convulsion [Unknown]
  - Malaise [Recovered/Resolved]
  - Bipolar I disorder [Unknown]
  - Schizophrenia [Unknown]
  - Adverse reaction [Unknown]
  - Bipolar disorder [Unknown]
  - Musculoskeletal stiffness [Unknown]
  - Malaise [Recovering/Resolving]
  - Discomfort [Unknown]
  - Intentional drug misuse [Unknown]
  - Drug dose omission [Unknown]
  - Intentional drug misuse [Unknown]
